FAERS Safety Report 6689283-5 (Version None)
Quarter: 2010Q2

REPORT INFORMATION
  Report Type: 
  Country: None (occurrence: None)
  Receive Date: 20100416
  Receipt Date: 20100405
  Transmission Date: 20101027
  Serious: Yes (Hospitalization)
  Sender: FDA-Public Use
  Company Number: 009797

PATIENT
  Sex: Male

DRUGS (1)
  1. CIMZIA [Suspect]
     Dosage: (400 MG 1X/2 WEEKS SUBCUTANEOUS)
     Route: 058
     Dates: start: 20091208

REACTIONS (6)
  - ABDOMINAL PAIN [None]
  - COLONOSCOPY ABNORMAL [None]
  - DIARRHOEA HAEMORRHAGIC [None]
  - INFLAMMATION [None]
  - JOINT SWELLING [None]
  - NODULE [None]
